FAERS Safety Report 4765765-8 (Version None)
Quarter: 2005Q3

REPORT INFORMATION
  Report Type: 
  Country: None (occurrence: None)
  Receive Date: 20050906
  Receipt Date: 20050826
  Transmission Date: 20060218
  Serious: Yes (Other)
  Sender: FDA-Public Use
  Company Number: 2005FR-00269

PATIENT
  Age: 25 Year
  Sex: Male
  Weight: 70 kg

DRUGS (3)
  1. ACETAMINOPHEN [Suspect]
  2. CLOZARIL [Concomitant]
  3. CLONAZEPAM [Concomitant]

REACTIONS (2)
  - HYPOTENSION [None]
  - OVERDOSE [None]
